FAERS Safety Report 13054849 (Version 1)
Quarter: 2016Q4

REPORT INFORMATION
  Report Type: Spontaneous
  Country: US (occurrence: US)
  Receive Date: 20161222
  Receipt Date: 20161222
  Transmission Date: 20170207
  Serious: No
  Sender: FDA-Public Use
  Company Number: US-PFIZER INC-2016580583

PATIENT
  Sex: Male

DRUGS (2)
  1. MORPHINE SULFATE. [Suspect]
     Active Substance: MORPHINE SULFATE
     Dosage: UNK, AS NEEDED (4 TIMES A DAY)
     Route: 048
     Dates: end: 20151015
  2. FENTANYL CITRATE. [Suspect]
     Active Substance: FENTANYL CITRATE
     Dosage: UNK UNK, DAILY (PATCH 72 HR, 1 PATCH OF 25 MCG/HR)
     Route: 062
     Dates: start: 20160104, end: 20160203

REACTIONS (2)
  - Rash [Unknown]
  - Drug hypersensitivity [Unknown]
